FAERS Safety Report 25370855 (Version 4)
Quarter: 2025Q3

REPORT INFORMATION
  Report Type: Report from Study
  Country: KR (occurrence: KR)
  Receive Date: 20250528
  Receipt Date: 20250725
  Transmission Date: 20251020
  Serious: Yes (Hospitalization)
  Sender: ABBVIE
  Company Number: KR-ABBVIE-6297090

PATIENT
  Age: 53 Year
  Sex: Male

DRUGS (11)
  1. SKYRIZI [Suspect]
     Active Substance: RISANKIZUMAB-RZAA
     Indication: Psoriasis
     Route: 058
     Dates: start: 20221107, end: 20221107
  2. SKYRIZI [Suspect]
     Active Substance: RISANKIZUMAB-RZAA
     Route: 058
     Dates: start: 20231016, end: 20231016
  3. SKYRIZI [Suspect]
     Active Substance: RISANKIZUMAB-RZAA
     Route: 058
     Dates: start: 20230130, end: 20230130
  4. SKYRIZI [Suspect]
     Active Substance: RISANKIZUMAB-RZAA
     Route: 058
     Dates: start: 20230718, end: 20230718
  5. SKYRIZI [Suspect]
     Active Substance: RISANKIZUMAB-RZAA
     Route: 058
     Dates: start: 20230425, end: 20230425
  6. SKYRIZI [Suspect]
     Active Substance: RISANKIZUMAB-RZAA
     Route: 058
     Dates: start: 20221007, end: 20221007
  7. Adipam [Concomitant]
     Indication: Psoriasis
     Dosage: TAB 10MG
     Route: 048
     Dates: start: 20230718
  8. Twolion [Concomitant]
     Indication: Psoriasis
     Route: 048
     Dates: start: 20230130
  9. RUPAFIN [Concomitant]
     Active Substance: RUPATADINE FUMARATE
     Indication: Psoriasis
     Route: 048
     Dates: start: 20230718
  10. Clerben [Concomitant]
     Indication: Psoriasis
     Dosage: SOLUTION
     Dates: start: 20230130
  11. XYZAL [Concomitant]
     Active Substance: LEVOCETIRIZINE DIHYDROCHLORIDE
     Indication: Psoriasis
     Dosage: 5 MG
     Route: 048
     Dates: start: 20230130

REACTIONS (3)
  - Prostatitis [Recovering/Resolving]
  - Eczema [Recovered/Resolved]
  - Anal fissure [Recovering/Resolving]

NARRATIVE: CASE EVENT DATE: 20221118
